FAERS Safety Report 6173356-X (Version None)
Quarter: 2009Q2

REPORT INFORMATION
  Report Type: 
  Country: None (occurrence: None)
  Receive Date: 20090428
  Receipt Date: 20090413
  Transmission Date: 20091009
  Serious: Yes (Hospitalization)
  Sender: FDA-Public Use
  Company Number: 2009001133

PATIENT
  Sex: Male

DRUGS (3)
  1. TARCEVA [Suspect]
     Indication: NON-SMALL CELL LUNG CANCER
     Dosage: (150 MG,QD),ORAL
     Route: 048
     Dates: start: 20090109, end: 20090320
  2. HERBAL EXTRACTS NOS [Suspect]
  3. CLOXACILLIN [Suspect]

REACTIONS (1)
  - STEVENS-JOHNSON SYNDROME [None]
